FAERS Safety Report 5154106-2 (Version None)
Quarter: 2006Q4

REPORT INFORMATION
  Report Type: 
  Country: None (occurrence: None)
  Receive Date: 20061115
  Receipt Date: 20061115
  Transmission Date: 20070319
  Serious: Yes (Hospitalization)
  Sender: FDA-Public Use
  Company Number: None

PATIENT
  Age: 31 Year
  Sex: Male
  Weight: 74.9342 kg

DRUGS (1)
  1. DARUNAVIR ETHANOLATE 300 MG TABS [Suspect]
     Indication: HIV INFECTION
     Dosage: 600 MG BID PO
     Route: 048
     Dates: start: 20061020, end: 20061101

REACTIONS (1)
  - DRUG HYPERSENSITIVITY [None]
